FAERS Safety Report 12313327 (Version 1)
Quarter: 2016Q2

REPORT INFORMATION
  Report Type: Spontaneous
  Country: US (occurrence: US)
  Receive Date: 20160428
  Receipt Date: 20160428
  Transmission Date: 20160815
  Serious: No
  Sender: FDA-Public Use
  Company Number: US-PFIZER INC-2016197150

PATIENT
  Sex: Female

DRUGS (2)
  1. ADVIL [Suspect]
     Active Substance: IBUPROFEN
     Indication: PAIN
     Dosage: FOUR OR FIVE DOSES DAILY
  2. ADVIL [Suspect]
     Active Substance: IBUPROFEN
     Indication: DEPRESSION

REACTIONS (2)
  - Drug tolerance [Unknown]
  - Intentional product misuse [Unknown]
